FAERS Safety Report 8086132-8 (Version None)
Quarter: 2012Q1

REPORT INFORMATION
  Report Type: 
  Country: None (occurrence: None)
  Receive Date: 20120128
  Receipt Date: 20110412
  Transmission Date: 20120608
  Serious: No
  Sender: FDA-Public Use
  Company Number: US-ABBOTT-11P-163-0719080-00

PATIENT
  Sex: Male
  Weight: 93.07 kg

DRUGS (4)
  1. HUMIRA [Suspect]
     Indication: PSORIATIC ARTHROPATHY
     Dates: start: 20110329
  2. NAPROXEN [Concomitant]
     Indication: PSORIATIC ARTHROPATHY
     Dosage: ARTHRITSI
  3. PROPRANOLOL [Concomitant]
     Indication: PRODUCT USED FOR UNKNOWN INDICATION
     Dates: start: 20010101
  4. LAMOTRIGINE [Concomitant]
     Indication: EPILEPSY
     Dates: start: 20010101

REACTIONS (2)
  - COUGH [None]
  - RHINORRHOEA [None]
